FAERS Safety Report 8197289-2 (Version None)
Quarter: 2012Q1

REPORT INFORMATION
  Report Type: 
  Country: None (occurrence: None)
  Receive Date: 20120309
  Receipt Date: 20120229
  Transmission Date: 20120608
  Serious: Yes (Hospitalization)
  Sender: FDA-Public Use
  Company Number: NL-PERRIGO-12NL001847

PATIENT
  Age: 23 Year
  Sex: Female

DRUGS (2)
  1. MESALAMINE [Suspect]
     Indication: CROHN'S DISEASE
     Dosage: UNK
     Route: 065
  2. BUDESONIDE [Suspect]
     Indication: CROHN'S DISEASE
     Dosage: UNK
     Route: 065

REACTIONS (2)
  - PANCREATITIS ACUTE [None]
  - DRUG INEFFECTIVE FOR UNAPPROVED INDICATION [None]
